FAERS Safety Report 9284986 (Version 3)
Quarter: 2015Q2

REPORT INFORMATION
  Report Type: Spontaneous
  Country: AR (occurrence: AR)
  Receive Date: 20130513
  Receipt Date: 20150511
  Transmission Date: 20150821
  Serious: Yes (Other)
  Sender: FDA-Public Use
  Company Number: PHHY2013AR046677

PATIENT
  Sex: Female

DRUGS (3)
  1. FEMARA [Suspect]
     Active Substance: LETROZOLE
     Indication: BREAST CANCER
     Dosage: 2.5 MG, QD
     Route: 048
     Dates: start: 2008, end: 201110
  2. ZOLEDRONIC ACID [Concomitant]
     Active Substance: ZOLEDRONIC ACID
     Indication: PRODUCT USED FOR UNKNOWN INDICATION
     Route: 065
  3. FEMARA [Suspect]
     Active Substance: LETROZOLE
     Dosage: 2.5 MG, QD
     Route: 048
     Dates: end: 20140720

REACTIONS (27)
  - Bradycardia [Not Recovered/Not Resolved]
  - Blood urea abnormal [Unknown]
  - Osteopenia [Not Recovered/Not Resolved]
  - Fall [Recovered/Resolved]
  - Peripheral swelling [Unknown]
  - Alopecia [Not Recovered/Not Resolved]
  - Melaena [Unknown]
  - Blindness transient [Recovered/Resolved]
  - Mobility decreased [Recovered/Resolved]
  - Blood pressure abnormal [Recovered/Resolved]
  - Myalgia [Not Recovered/Not Resolved]
  - Cataract [Unknown]
  - Insomnia [Recovered/Resolved]
  - Vision blurred [Recovered/Resolved]
  - Onychoclasis [Not Recovered/Not Resolved]
  - Haemorrhage [Unknown]
  - Osteoporosis [Recovered/Resolved]
  - Nervousness [Not Recovered/Not Resolved]
  - Malaise [Recovered/Resolved]
  - Nodule [Unknown]
  - Gastric haemorrhage [Not Recovered/Not Resolved]
  - Cartilage injury [Recovered/Resolved]
  - Weight increased [Recovered/Resolved]
  - Hyperhidrosis [Recovered/Resolved]
  - Asthenia [Recovered/Resolved]
  - Abasia [Not Recovered/Not Resolved]
  - Panic disorder [Recovered/Resolved]

NARRATIVE: CASE EVENT DATE: 2011
